FAERS Safety Report 4470120-4 (Version None)
Quarter: 2004Q3

REPORT INFORMATION
  Report Type: 
  Country: None (occurrence: None)
  Receive Date: 20040910
  Receipt Date: 20040810
  Transmission Date: 20050211
  Serious: No
  Sender: FDA-Public Use
  Company Number: 2004-00342

PATIENT
  Age: 70 Year
  Sex: Male
  Weight: 102.9 kg

DRUGS (3)
  1. VELCADE [Suspect]
     Indication: MULTIPLE MYELOMA
     Dosage: 3.00 MG INTRAVENOUS
     Route: 042
  2. FLORINEF [Concomitant]
  3. PROTONIX [Concomitant]

REACTIONS (1)
  - RASH [None]
